FAERS Safety Report 7440190-X (Version None)
Quarter: 2011Q2

REPORT INFORMATION
  Report Type: 
  Country: None (occurrence: None)
  Receive Date: 20110427
  Receipt Date: 20110418
  Transmission Date: 20111010
  Serious: Yes (Hospitalization, Other)
  Sender: FDA-Public Use
  Company Number: IT-ROCHE-773222

PATIENT
  Age: 62 Year
  Sex: Male

DRUGS (5)
  1. IRBESARTAN [Concomitant]
  2. PEGINTERFERON ALFA-2A [Suspect]
     Route: 058
  3. CARVEDILOL [Concomitant]
  4. RIBAVIRIN [Suspect]
     Dosage: DOSE: AS PER GENOTYPE AND BODY WEIGHT, FREQUENCY: DAILY
     Route: 065
  5. ASPIRIN [Concomitant]

REACTIONS (2)
  - SYNCOPE [None]
  - ANAEMIA [None]
